FAERS Safety Report 16592058 (Version 1)
Quarter: 2019Q3

REPORT INFORMATION
  Report Type: Spontaneous
  Country: FR (occurrence: FR)
  Receive Date: 20190718
  Receipt Date: 20190718
  Transmission Date: 20191004
  Serious: Yes (Other)
  Sender: FDA-Public Use
  Company Number: FR-TEVA-2019-FR-1078853

PATIENT
  Age: 68 Year
  Sex: Female

DRUGS (3)
  1. FLUOROURACIL. [Suspect]
     Active Substance: FLUOROURACIL
     Indication: PANCREATIC CARCINOMA
     Dosage: 1750 MG
     Route: 041
     Dates: start: 201804, end: 201901
  2. METOCLOPRAMIDE. [Suspect]
     Active Substance: METOCLOPRAMIDE
     Indication: PROPHYLACTIC CHEMOTHERAPY
     Dosage: 10 MG
     Route: 042
     Dates: start: 20181116, end: 20181228
  3. DROPERIDOL. [Concomitant]
     Active Substance: DROPERIDOL
     Route: 065

REACTIONS (2)
  - Tremor [Not Recovered/Not Resolved]
  - Trismus [Not Recovered/Not Resolved]

NARRATIVE: CASE EVENT DATE: 20181123
